FAERS Safety Report 4668638-4 (Version None)
Quarter: 2005Q2

REPORT INFORMATION
  Report Type: 
  Country: None (occurrence: None)
  Receive Date: 20050523
  Receipt Date: 20041125
  Transmission Date: 20051028
  Serious: Yes (Other)
  Sender: FDA-Public Use
  Company Number: PHNU2004DE03957

PATIENT
  Sex: Male
  Weight: 67 kg

DRUGS (4)
  1. FURORESE [Concomitant]
     Route: 065
  2. ALLOPURINOL [Concomitant]
     Route: 065
  3. LISINOPRIL [Concomitant]
     Route: 065
  4. ZOMETA [Suspect]
     Dosage: 4 MG, QMO
     Dates: start: 20031001, end: 20040601

REACTIONS (4)
  - BONE OPERATION [None]
  - INFLAMMATION [None]
  - OSTEOMYELITIS [None]
  - PLASMACYTOMA [None]
